FAERS Safety Report 11605315 (Version 2)
Quarter: 2015Q4

REPORT INFORMATION
  Report Type: Report from Study
  Country: BR (occurrence: BR)
  Receive Date: 20151007
  Receipt Date: 20151029
  Transmission Date: 20160304
  Serious: Yes (Hospitalization)
  Sender: FDA-Public Use
  Company Number: PHHY2015BR120106

PATIENT
  Sex: Female
  Weight: 58 kg

DRUGS (1)
  1. EXJADE [Suspect]
     Active Substance: DEFERASIROX
     Indication: SICKLE CELL ANAEMIA
     Dosage: 3 DF OF 500 MG UNK
     Route: 065
     Dates: start: 201411

REACTIONS (4)
  - Bacterial infection [Unknown]
  - Pyrexia [Unknown]
  - Diarrhoea [Unknown]
  - Serum ferritin increased [Unknown]
